FAERS Safety Report 20132621 (Version 4)
Quarter: 2022Q1

REPORT INFORMATION
  Report Type: Report from Study
  Country: CL (occurrence: CL)
  Receive Date: 20211130
  Receipt Date: 20220328
  Transmission Date: 20220423
  Serious: Yes (Hospitalization)
  Sender: FDA-Public Use
  Company Number: CL-BRISTOL-MYERS SQUIBB COMPANY-BMS-2021-126729

PATIENT
  Age: 77 Year
  Sex: Male
  Weight: 75 kg

DRUGS (15)
  1. NIVOLUMAB [Suspect]
     Active Substance: NIVOLUMAB
     Indication: Non-small cell lung cancer
     Route: 042
     Dates: start: 20211115
  2. CARBOPLATIN [Suspect]
     Active Substance: CARBOPLATIN
     Indication: Non-small cell lung cancer
     Route: 065
     Dates: start: 20211115
  3. PEMETREXED DISODIUM [Suspect]
     Active Substance: PEMETREXED DISODIUM
     Indication: Non-small cell lung cancer
     Route: 065
     Dates: start: 20211115
  4. RELATLIMAB [Suspect]
     Active Substance: RELATLIMAB
     Indication: Non-small cell lung cancer
     Dosage: 100 MILLILITER
     Route: 042
     Dates: start: 20211115
  5. NIVOLUMAB [Suspect]
     Active Substance: NIVOLUMAB
     Indication: Non-small cell lung cancer
     Dosage: 100 MILLILITER
     Route: 042
     Dates: start: 20211115
  6. NIVOLUMAB\RELATLIMAB-RMBW [Suspect]
     Active Substance: NIVOLUMAB\RELATLIMAB-RMBW
     Indication: Non-small cell lung cancer
     Dosage: 100 MILLILITER
     Route: 042
     Dates: start: 20211115
  7. LOPERAMIDE [Concomitant]
     Active Substance: LOPERAMIDE
     Indication: Nausea
     Route: 048
     Dates: start: 20211119
  8. LOPERAMIDE [Concomitant]
     Active Substance: LOPERAMIDE
     Indication: Diarrhoea
  9. FEXOFENADINE [Concomitant]
     Active Substance: FEXOFENADINE HYDROCHLORIDE
     Indication: Nausea
     Route: 048
     Dates: start: 20211119
  10. FEXOFENADINE [Concomitant]
     Active Substance: FEXOFENADINE HYDROCHLORIDE
     Indication: Dysphonia
  11. COVID-19 VACCINE [Concomitant]
     Indication: Product used for unknown indication
     Dosage: THIRD DOSE
     Route: 065
     Dates: start: 20210818
  12. VITAMIN B-COMPLEX [VITAMIN B COMPLEX] [Concomitant]
     Indication: Product used for unknown indication
     Dosage: 1 DOSAGE FORM, ONCE
     Route: 030
     Dates: start: 20211115, end: 20211115
  13. FOLIC ACID [Concomitant]
     Active Substance: FOLIC ACID
     Indication: Product used for unknown indication
     Dosage: 1 MILLIGRAM, ONCE
     Route: 048
     Dates: start: 20211115, end: 20211115
  14. NETUPITANT [Concomitant]
     Active Substance: NETUPITANT
     Indication: Product used for unknown indication
     Route: 048
     Dates: start: 20211115, end: 20211115
  15. BETAMETHASONE [Concomitant]
     Active Substance: BETAMETHASONE
     Indication: Product used for unknown indication
     Route: 042
     Dates: start: 20211115, end: 20211115

REACTIONS (1)
  - Troponin I increased [Recovering/Resolving]

NARRATIVE: CASE EVENT DATE: 20211119
